FAERS Safety Report 25318740 (Version 1)
Quarter: 2025Q2

REPORT INFORMATION
  Report Type: Spontaneous
  Country: PL (occurrence: PL)
  Receive Date: 20250515
  Receipt Date: 20250515
  Transmission Date: 20250717
  Serious: Yes (Other)
  Sender: TEVA
  Company Number: PL-TEVA-VS-3330586

PATIENT
  Age: 47 Year
  Sex: Female

DRUGS (2)
  1. CARBAMAZEPINE [Interacting]
     Active Substance: CARBAMAZEPINE
     Indication: Product used for unknown indication
     Route: 065
  2. TRAMADOL [Interacting]
     Active Substance: TRAMADOL
     Indication: Facial pain
     Route: 048

REACTIONS (2)
  - Seizure [Unknown]
  - Drug interaction [Unknown]
